FAERS Safety Report 5703353-7 (Version None)
Quarter: 2008Q2

REPORT INFORMATION
  Report Type: 
  Country: None (occurrence: None)
  Receive Date: 20080411
  Receipt Date: 20080319
  Transmission Date: 20081010
  Serious: No
  Sender: FDA-Public Use
  Company Number: US-BOEHRINGER INGELHEIM GMBH, GERMANY-2008-BP-02611BP

PATIENT
  Sex: Male

DRUGS (7)
  1. SPIRIVA [Suspect]
     Indication: EMPHYSEMA
     Route: 055
     Dates: start: 20070201
  2. SPIRIVA [Suspect]
     Indication: LUNG DISORDER
  3. ALBUTEROL [Concomitant]
  4. ADVAIR HFA [Concomitant]
  5. LEXAPRO [Concomitant]
  6. ZOCOR [Concomitant]
  7. DILTIAZEM [Concomitant]

REACTIONS (3)
  - DRUG INEFFECTIVE [None]
  - DYSGEUSIA [None]
  - DYSPNOEA [None]
